FAERS Safety Report 14305895 (Version 3)
Quarter: 2018Q1

REPORT INFORMATION
  Report Type: Report from Study
  Country: BR (occurrence: BR)
  Receive Date: 20171219
  Receipt Date: 20180105
  Transmission Date: 20180509
  Serious: Yes (Death, Hospitalization)
  Sender: FDA-Public Use
  Company Number: BR-B.I. PHARMACEUTICALS,INC./RIDGEFIELD-2017-BI-067437

PATIENT
  Age: 92 Year
  Sex: Male
  Weight: 76 kg

DRUGS (6)
  1. PREBICTAL [Concomitant]
     Active Substance: PREGABALIN
     Indication: NEUROPATHY PERIPHERAL
     Route: 048
  2. CARVEDILOL. [Concomitant]
     Active Substance: CARVEDILOL
     Indication: CONGESTIVE CARDIOMYOPATHY
     Route: 048
  3. DABIGATRAN [Suspect]
     Active Substance: DABIGATRAN
     Indication: ATRIAL FIBRILLATION
     Route: 048
     Dates: start: 201708
  4. DABIGATRAN [Suspect]
     Active Substance: DABIGATRAN
     Indication: CEREBROVASCULAR ACCIDENT PROPHYLAXIS
     Route: 048
     Dates: start: 20170905, end: 20171213
  5. THIAMINE. [Concomitant]
     Active Substance: THIAMINE
     Indication: NEUROPATHY PERIPHERAL
     Route: 048
  6. INDAPAMIDE. [Concomitant]
     Active Substance: INDAPAMIDE
     Indication: HYPERTENSION
     Route: 048

REACTIONS (6)
  - Shock [Fatal]
  - Haematochezia [Unknown]
  - Cardio-respiratory arrest [Fatal]
  - Malaise [Unknown]
  - Intestinal haemorrhage [Fatal]
  - Asthenia [Unknown]

NARRATIVE: CASE EVENT DATE: 20171210
